FAERS Safety Report 10005380 (Version 2)
Quarter: 2014Q2

REPORT INFORMATION
  Report Type: Spontaneous
  Country: PT (occurrence: PT)
  Receive Date: 20140313
  Receipt Date: 20140604
  Transmission Date: 20141212
  Serious: Yes (Other)
  Sender: FDA-Public Use
  Company Number: PT-ROCHE-1362857

PATIENT
  Age: 56 Year
  Sex: 0

DRUGS (6)
  1. TRASTUZUMAB [Suspect]
     Indication: METASTASES TO CENTRAL NERVOUS SYSTEM
     Route: 058
  2. TRASTUZUMAB [Suspect]
     Indication: METASTASES TO BONE
  3. FULVESTRANT [Concomitant]
     Indication: METASTASES TO CENTRAL NERVOUS SYSTEM
  4. FULVESTRANT [Concomitant]
     Indication: METASTASES TO BONE
  5. DENOSUMAB [Concomitant]
     Indication: METASTASES TO CENTRAL NERVOUS SYSTEM
  6. DENOSUMAB [Concomitant]
     Indication: METASTASES TO BONE

REACTIONS (4)
  - Fatigue [Unknown]
  - Dry mouth [Unknown]
  - Decreased appetite [Unknown]
  - Cognitive disorder [Unknown]
